FAERS Safety Report 21797847 (Version 8)
Quarter: 2023Q4

REPORT INFORMATION
  Report Type: Spontaneous
  Country: CA (occurrence: CA)
  Receive Date: 20221230
  Receipt Date: 20231212
  Transmission Date: 20240109
  Serious: Yes (Other)
  Sender: FDA-Public Use
  Company Number: CA-CELLTRION INC.-2022CA021855

PATIENT

DRUGS (12)
  1. INFLECTRA [Suspect]
     Active Substance: INFLIXIMAB-DYYB
     Indication: Colitis ulcerative
     Dosage: 500 MG, Q0,2,6 WEEKS, THEN EVERY 8 WEEKS
     Route: 042
     Dates: start: 20221109
  2. INFLECTRA [Suspect]
     Active Substance: INFLIXIMAB-DYYB
     Dosage: 500 MG, Q0,2,6 WEEKS, THEN EVERY 8 WEEKS
     Route: 042
     Dates: start: 20221125
  3. INFLECTRA [Suspect]
     Active Substance: INFLIXIMAB-DYYB
     Dosage: 500 MG, Q0,2,6 WEEKS, THEN EVERY 8 WEEKS
     Route: 042
     Dates: start: 20221221
  4. INFLECTRA [Suspect]
     Active Substance: INFLIXIMAB-DYYB
     Dosage: 500 MG, Q0,2,6 WEEKS, THEN EVERY 8 WEEKS
     Route: 042
     Dates: start: 20230217
  5. INFLECTRA [Suspect]
     Active Substance: INFLIXIMAB-DYYB
     Dosage: 700 MG, EVERY 8 WEEKS (RECEIVED DOSE 3 WEEKS 4 DAYS AFTER)
     Route: 042
     Dates: start: 20230324
  6. INFLECTRA [Suspect]
     Active Substance: INFLIXIMAB-DYYB
     Dosage: 700 MG, EVERY 6 WEEKS
     Route: 042
     Dates: start: 20230728
  7. INFLECTRA [Suspect]
     Active Substance: INFLIXIMAB-DYYB
     Dosage: 700 MG, EVERY 8 WEEKS
     Route: 042
     Dates: start: 20231020
  8. INFLECTRA [Suspect]
     Active Substance: INFLIXIMAB-DYYB
     Dosage: 700 MG, EVERY 8 WEEKS(DOSAGE ADMINISTERED: 700 MG 6 WEEKS)
     Route: 042
     Dates: start: 20231201
  9. PENTASA [Concomitant]
     Active Substance: MESALAMINE
     Dosage: UNK
  10. PREDNISONE [Concomitant]
     Active Substance: PREDNISONE
     Dosage: UNK
  11. PREDNISONE [Concomitant]
     Active Substance: PREDNISONE
     Dosage: 15 MG, TAPPERING
  12. VITAMIN C [Concomitant]
     Active Substance: ASCORBIC ACID
     Dosage: UNK

REACTIONS (8)
  - Weight increased [Unknown]
  - Drug level below therapeutic [Not Recovered/Not Resolved]
  - Frequent bowel movements [Unknown]
  - Anaemia [Not Recovered/Not Resolved]
  - Condition aggravated [Not Recovered/Not Resolved]
  - Off label use [Unknown]
  - Off label use [Unknown]
  - Intentional product use issue [Unknown]

NARRATIVE: CASE EVENT DATE: 20221221
